FAERS Safety Report 7867603-3 (Version None)
Quarter: 2011Q4

REPORT INFORMATION
  Report Type: 
  Country: None (occurrence: None)
  Receive Date: 20111028
  Receipt Date: 20100401
  Transmission Date: 20120403
  Serious: No
  Sender: FDA-Public Use
  Company Number: US-BAYER-201018798NA

PATIENT
  Age: 60 Year
  Sex: Female

DRUGS (2)
  1. AVELOX [Suspect]
     Dosage: 400 MG, UNK
     Dates: start: 20100301
  2. ANTIPSYCHOTICS [Concomitant]

REACTIONS (1)
  - RASH [None]
